FAERS Safety Report 4951969-8 (Version None)
Quarter: 2006Q1

REPORT INFORMATION
  Report Type: 
  Country: None (occurrence: None)
  Receive Date: 20060323
  Receipt Date: 20060316
  Transmission Date: 20060701
  Serious: Yes (Life-Threatening)
  Sender: FDA-Public Use
  Company Number: AU-ROCHE-440773

PATIENT
  Sex: Male

DRUGS (1)
  1. ROCEPHIN [Suspect]
     Dosage: FORM STATED AS POWDER FOR INJECTION.
     Route: 042
     Dates: start: 20051014, end: 20051014

REACTIONS (4)
  - CHEST DISCOMFORT [None]
  - RESPIRATORY ARREST [None]
  - SNEEZING [None]
  - THROAT TIGHTNESS [None]
